FAERS Safety Report 4620974-3 (Version None)
Quarter: 2005Q1

REPORT INFORMATION
  Report Type: 
  Country: None (occurrence: None)
  Receive Date: 20050325
  Receipt Date: 20050307
  Transmission Date: 20050727
  Serious: Yes (Death, Hospitalization, Disabling)
  Sender: FDA-Public Use
  Company Number: D01200401595

PATIENT
  Age: 63 Year
  Sex: Female
  Weight: 85.7298 kg

DRUGS (12)
  1. CLOPIDOGREL BISULFATE [Suspect]
     Indication: ANGIOPATHY
     Dosage: 75 MG QD  ORAL
     Route: 048
     Dates: start: 20040303, end: 20040327
  2. CLOPIDOGREL BISULFATE [Suspect]
     Indication: PROPHYLAXIS
     Dosage: 75 MG QD  ORAL
     Route: 048
     Dates: start: 20040303, end: 20040327
  3. IRBESARTAN [Suspect]
     Indication: BLOOD PRESSURE INCREASED
     Dosage: 150 MG/DAY FOR TWO WEEKS FOLLOWING BY 300 MG/DAY ORAL
     Route: 048
     Dates: start: 20040303
  4. IRBESARTAN [Suspect]
     Indication: PROPHYLAXIS
     Dosage: 150 MG/DAY FOR TWO WEEKS FOLLOWING BY 300 MG/DAY ORAL
     Route: 048
     Dates: start: 20040303
  5. ACETYL SALICYLIC ACID USP BAT [Concomitant]
  6. RAMIPRIL [Concomitant]
  7. GLYCERYL TRINITRATE [Concomitant]
  8. GLIPIZIDE [Concomitant]
  9. HYDROCHLOROTHIAZIDE [Concomitant]
  10. METOPROLOL TARTRATE [Concomitant]
  11. SIMVASTATIN [Concomitant]
  12. ROSIGLITAZONE MALEATE [Concomitant]

REACTIONS (7)
  - CEREBRAL ARTERY OCCLUSION [None]
  - CEREBRAL INFARCTION [None]
  - CEREBROVASCULAR DISORDER [None]
  - DEPRESSED LEVEL OF CONSCIOUSNESS [None]
  - HAEMORRHAGIC STROKE [None]
  - NOSOCOMIAL INFECTION [None]
  - URINARY TRACT INFECTION [None]
